FAERS Safety Report 9916049 (Version 3)
Quarter: 2014Q2

REPORT INFORMATION
  Report Type: Spontaneous
  Country: ES (occurrence: None)
  Receive Date: 20140219
  Receipt Date: 20140603
  Transmission Date: 20141212
  Serious: Yes (Death, Hospitalization)
  Sender: FDA-Public Use
  Company Number: 2014ES003011

PATIENT
  Age: 73 Year
  Sex: Male

DRUGS (1)
  1. PONATINIB [Suspect]
     Indication: CHRONIC MYELOID LEUKAEMIA
     Route: 048
     Dates: start: 20110628, end: 20131128

REACTIONS (2)
  - Cerebrovascular accident [None]
  - Respiratory arrest [None]
